FAERS Safety Report 19816318 (Version 1)
Quarter: 2021Q3

REPORT INFORMATION
  Report Type: Spontaneous
  Country: None (occurrence: US)
  Receive Date: 20210909
  Receipt Date: 20210909
  Transmission Date: 20211014
  Serious: Yes (Other)
  Sender: FDA-Public Use
  Company Number: US-HYGENIC CORPORATION-2118224

PATIENT
  Sex: Female

DRUGS (1)
  1. BIOFREEZE PATCH MULTI PACK [Suspect]
     Active Substance: MENTHOL
     Indication: LIGAMENT SPRAIN
     Route: 061

REACTIONS (1)
  - Thermal burn [Recovering/Resolving]
